FAERS Safety Report 9450563 (Version 1)
Quarter: 2013Q3

REPORT INFORMATION
  Report Type: Report from Study
  Country: AT (occurrence: GB)
  Receive Date: 20130809
  Receipt Date: 20130809
  Transmission Date: 20140515
  Serious: Yes (Death, Other)
  Sender: FDA-Public Use
  Company Number: AT-OTSUKA-US-2013-10749

PATIENT
  Age: 3 Year
  Sex: Female

DRUGS (2)
  1. BUSULFEX [Suspect]
     Indication: STEM CELL TRANSPLANT
     Route: 042
  2. MELPHALAN [Suspect]
     Indication: STEM CELL TRANSPLANT
     Dosage: 140 MG/M2, QD
     Route: 042

REACTIONS (19)
  - Death [Fatal]
  - Inferior vena caval occlusion [Unknown]
  - Ascites [Unknown]
  - Skin disorder [Unknown]
  - Diarrhoea [Unknown]
  - Pyrexia [Unknown]
  - Venoocclusive disease [Unknown]
  - Aspartate aminotransferase increased [Unknown]
  - Vomiting [Unknown]
  - Haemoglobin decreased [Unknown]
  - Blood bilirubin increased [Unknown]
  - Hypotension [Unknown]
  - Stomatitis [Unknown]
  - Infection [Unknown]
  - Platelet count decreased [Unknown]
  - Granulocyte count decreased [Unknown]
  - White blood cell count decreased [Unknown]
  - Hepatomegaly [Unknown]
  - Jaundice [Unknown]
